FAERS Safety Report 13336585 (Version 2)
Quarter: 2017Q1

REPORT INFORMATION
  Report Type: Report from Study
  Country: IQ (occurrence: IQ)
  Receive Date: 20170315
  Receipt Date: 20170320
  Transmission Date: 20170428
  Serious: Yes (Disabling)
  Sender: FDA-Public Use
  Company Number: IQ-ROCHE-1905416

PATIENT
  Age: 56 Year
  Sex: Female
  Weight: 63 kg

DRUGS (1)
  1. HERCEPTIN [Suspect]
     Active Substance: TRASTUZUMAB
     Indication: BREAST CANCER
     Dosage: 90 MINS DURATION OF THE MEDICATION, GIVEN EVERY 4 WEEKS FOR A DURATION OF 16 WEEKS
     Route: 042
     Dates: start: 20160808, end: 20161119

REACTIONS (2)
  - Gene mutation [Recovered/Resolved]
  - Fatigue [Recovered/Resolved]

NARRATIVE: CASE EVENT DATE: 20160808
